FAERS Safety Report 19454926 (Version 1)
Quarter: 2021Q2

REPORT INFORMATION
  Report Type: Spontaneous
  Country: US (occurrence: US)
  Receive Date: 20210623
  Receipt Date: 20210623
  Transmission Date: 20210717
  Serious: Yes (Other)
  Sender: FDA-Public Use
  Company Number: US-SPECGX-T202101486

PATIENT
  Age: 4 Year
  Sex: Male

DRUGS (2)
  1. OXYMORPHONE HYDROCHLORIDE. [Suspect]
     Active Substance: OXYMORPHONE HYDROCHLORIDE
     Indication: PRODUCT USED FOR UNKNOWN INDICATION
     Dosage: UNK
     Route: 065
  2. OXYCODONE [Suspect]
     Active Substance: OXYCODONE
     Indication: PRODUCT USED FOR UNKNOWN INDICATION
     Dosage: UNK
     Route: 065

REACTIONS (16)
  - Toxic leukoencephalopathy [Recovering/Resolving]
  - Hepatic function abnormal [Unknown]
  - Brain herniation [Unknown]
  - Tachycardia [Unknown]
  - Hypoglycaemia [Unknown]
  - Renal impairment [Unknown]
  - Toxicity to various agents [Unknown]
  - Intracranial pressure increased [Unknown]
  - Autonomic nervous system imbalance [Unknown]
  - Rhabdomyolysis [Unknown]
  - Overdose [Unknown]
  - Decubitus ulcer [Unknown]
  - Hypertension [Unknown]
  - Unresponsive to stimuli [Unknown]
  - Tachypnoea [Unknown]
  - Disseminated intravascular coagulation [Unknown]
